FAERS Safety Report 19117386 (Version 2)
Quarter: 2021Q2

REPORT INFORMATION
  Report Type: Spontaneous
  Country: US (occurrence: US)
  Receive Date: 20210409
  Receipt Date: 20210430
  Transmission Date: 20210717
  Serious: Yes (Hospitalization)
  Sender: FDA-Public Use
  Company Number: US-ASTRAZENECA-2021A271219

PATIENT
  Age: 19094 Day
  Sex: Female
  Weight: 152 kg

DRUGS (9)
  1. ELIQUIS [Concomitant]
     Active Substance: APIXABAN
     Indication: PULMONARY THROMBOSIS
     Route: 048
     Dates: start: 20210324
  2. POTASSIUM CITRATE. [Concomitant]
     Active Substance: POTASSIUM CITRATE
     Indication: BLOOD URIC ACID ABNORMAL
     Route: 048
     Dates: start: 20210106
  3. LOSARTAN. [Concomitant]
     Active Substance: LOSARTAN
     Indication: BLOOD PRESSURE MEASUREMENT
     Route: 048
     Dates: start: 20210324
  4. CITIRIZINE HCL [Concomitant]
     Indication: HYPERSENSITIVITY
     Route: 048
  5. BYDUREON [Suspect]
     Active Substance: EXENATIDE
     Indication: TYPE 2 DIABETES MELLITUS
     Route: 058
     Dates: start: 20210312
  6. POTASSIUM CITRATE. [Concomitant]
     Active Substance: POTASSIUM CITRATE
     Indication: RENAL DISORDER
     Route: 048
     Dates: start: 20210106
  7. ATENOLOL. [Concomitant]
     Active Substance: ATENOLOL
     Indication: BLOOD PRESSURE MEASUREMENT
     Route: 048
  8. CLONIDINE. [Concomitant]
     Active Substance: CLONIDINE
     Indication: BLOOD PRESSURE MEASUREMENT
     Route: 048
  9. ATORVASTATIN [Concomitant]
     Active Substance: ATORVASTATIN
     Indication: BLOOD CHOLESTEROL INCREASED
     Route: 048
     Dates: start: 20210225

REACTIONS (9)
  - Haemorrhagic diathesis [Recovered/Resolved]
  - Wrong technique in device usage process [Recovered/Resolved]
  - Device malfunction [Unknown]
  - Device leakage [Unknown]
  - Chest pain [Recovered/Resolved]
  - Pulmonary thrombosis [Not Recovered/Not Resolved]
  - Injection site haemorrhage [Recovered/Resolved]
  - Oxygen saturation decreased [Unknown]
  - Device use issue [Unknown]

NARRATIVE: CASE EVENT DATE: 20210322
